FAERS Safety Report 5920570-1 (Version None)
Quarter: 2008Q4

REPORT INFORMATION
  Report Type: 
  Country: None (occurrence: None)
  Receive Date: 20081016
  Receipt Date: 20081015
  Transmission Date: 20090506
  Serious: Yes (Hospitalization)
  Sender: FDA-Public Use
  Company Number: PHHO2000CA02093

PATIENT
  Sex: Male

DRUGS (4)
  1. NEORAL [Suspect]
     Route: 048
     Dates: start: 19990827, end: 19991202
  2. MYCOPHENOLIC ACID [Suspect]
     Dosage: 720 MG, BID
     Route: 048
     Dates: start: 19990827, end: 19991201
  3. VASOTEC [Concomitant]
  4. RANITIDINE [Concomitant]

REACTIONS (2)
  - CHOLANGITIS [None]
  - LIVER FUNCTION TEST ABNORMAL [None]
